FAERS Safety Report 9443022 (Version 1)
Quarter: 2013Q3

REPORT INFORMATION
  Report Type: Spontaneous
  Country: CH (occurrence: CH)
  Receive Date: 20130806
  Receipt Date: 20130806
  Transmission Date: 20140515
  Serious: Yes (Hospitalization)
  Sender: FDA-Public Use
  Company Number: CH-UCBSA-093561

PATIENT
  Age: 22 Year
  Sex: Female

DRUGS (4)
  1. KEPPRA [Suspect]
     Indication: EPILEPSY
     Dosage: UNSPECIFIED DOSE
     Route: 048
     Dates: start: 201009, end: 201010
  2. KEPPRA [Suspect]
     Indication: EPILEPSY
     Dosage: UNSPECIFIED DOSE
     Route: 048
     Dates: start: 201208
  3. LAMICTAL [Suspect]
     Indication: EPILEPSY
     Dosage: UNSPECIFIED DOSE
     Route: 048
     Dates: start: 201009, end: 201010
  4. TOREM [Suspect]

REACTIONS (5)
  - Drug reaction with eosinophilia and systemic symptoms [Recovered/Resolved]
  - Renal failure acute [Recovered/Resolved]
  - Liver injury [Recovered/Resolved]
  - Rash maculo-papular [Recovered/Resolved]
  - Eosinophilia [Recovered/Resolved]
